FAERS Safety Report 5449122-7 (Version None)
Quarter: 2007Q3

REPORT INFORMATION
  Report Type: 
  Country: None (occurrence: None)
  Receive Date: 20070911
  Receipt Date: 20070831
  Transmission Date: 20080115
  Serious: Yes (Hospitalization)
  Sender: FDA-Public Use
  Company Number: US-GENENTECH-242538

PATIENT
  Sex: Female
  Weight: 74.83 kg

DRUGS (3)
  1. AVASTIN [Suspect]
     Indication: NON-SMALL CELL LUNG CANCER
     Dosage: 1098 MG, Q3W
     Route: 042
     Dates: start: 20061214, end: 20070402
  2. CARBOPLATIN [Concomitant]
     Indication: NON-SMALL CELL LUNG CANCER
     Dosage: 470 MG, UNKNOWN
     Route: 065
     Dates: start: 20061214
  3. GEMZAR [Concomitant]
     Indication: NON-SMALL CELL LUNG CANCER
     Dosage: 1840 MG, UNKNOWN
     Route: 065
     Dates: start: 20061214

REACTIONS (2)
  - MULTI-ORGAN FAILURE [None]
  - PULMONARY HYPERTENSION [None]
